FAERS Safety Report 15833159 (Version 1)
Quarter: 2018Q4

REPORT INFORMATION
  Report Type: Spontaneous
  Country: US (occurrence: US)
  Receive Date: 20181220
  Receipt Date: 20181220
  Transmission Date: 20190205
  Serious: Yes (Hospitalization)
  Sender: FDA-Public Use
  Company Number: None

PATIENT
  Age: 32 Year
  Sex: Male
  Weight: 69.4 kg

DRUGS (13)
  1. METHADONE [Suspect]
     Active Substance: METHADONE HYDROCHLORIDE
     Indication: HEPATITIS C
     Route: 048
     Dates: start: 20170921, end: 20171213
  2. NALOXONE [Concomitant]
     Active Substance: NALOXONE
  3. ETOH [Suspect]
     Active Substance: ALCOHOL
  4. CLONAZEPAM. [Concomitant]
     Active Substance: CLONAZEPAM
  5. METHADONE [Concomitant]
     Active Substance: METHADONE HYDROCHLORIDE
  6. TAMSULOSIN [Concomitant]
     Active Substance: TAMSULOSIN
  7. XANAX [Suspect]
     Active Substance: ALPRAZOLAM
  8. TUMS [Concomitant]
     Active Substance: CALCIUM CARBONATE
  9. DEXTROAMPHETAMINE. [Concomitant]
     Active Substance: DEXTROAMPHETAMINE
  10. LORATADINE. [Concomitant]
     Active Substance: LORATADINE
  11. GABAPENTIN. [Concomitant]
     Active Substance: GABAPENTIN
  12. ZALEPLON. [Concomitant]
     Active Substance: ZALEPLON
  13. HARVONI [Suspect]
     Active Substance: LEDIPASVIR\SOFOSBUVIR
     Indication: HEPATITIS C
     Route: 048
     Dates: start: 20170921, end: 20171213

REACTIONS (2)
  - Hypoxia [None]
  - Alcohol withdrawal syndrome [None]

NARRATIVE: CASE EVENT DATE: 20171021
